FAERS Safety Report 9196191 (Version 2)
Quarter: 2013Q2

REPORT INFORMATION
  Report Type: Spontaneous
  Country: US (occurrence: None)
  Receive Date: 20120709
  Receipt Date: 20121107
  Transmission Date: 20140414
  Serious: Yes (Other)
  Sender: FDA-Public Use
  Company Number: 2012HGS-003711

PATIENT
  Age: 49 Year
  Sex: Female
  Weight: 88 kg

DRUGS (8)
  1. BENLYSTA [Suspect]
     Indication: SYSTEMIC LUPUS ERYTHEMATOSUS
     Dosage: 881.82 MG, 1 IN 28 D, INTRAVENOUS DRIP
     Route: 041
     Dates: start: 201205
  2. HYDROXYCHLOROQUINE (HYDROXYCHLOROQUINE) (HYDROXYCHLOROQUINE) [Concomitant]
  3. SULFASALAZINE (SULFASALAZINE) (SULFASALAZINE) [Concomitant]
  4. OXYCODONE (OXYCODONE) (OXYCODONE) [Concomitant]
  5. LEXAPRO (ESCITALOPRAM OXALATE) (ESCITALOPRAM OXALATE) [Concomitant]
  6. ASPIRIN (ACETYLSALICYLIC ACID) (ACETYLSALICYLIC ACID) [Concomitant]
  7. HYDROXYUREA (HYDROXYCARBAMIDE) (HYDROXYCARBAMIDE) [Concomitant]
  8. PREDNISONE (PREDNISONE) (PREDNISONE) [Concomitant]

REACTIONS (5)
  - Nasopharyngitis [None]
  - Hyperhidrosis [None]
  - Rhinorrhoea [None]
  - Eye irritation [None]
  - Ocular hyperaemia [None]
